FAERS Safety Report 5233867-8 (Version None)
Quarter: 2007Q1

REPORT INFORMATION
  Report Type: 
  Country: None (occurrence: None)
  Receive Date: 20070206
  Receipt Date: 20070117
  Transmission Date: 20070707
  Serious: Yes (Other)
  Sender: FDA-Public Use
  Company Number: 2007BL000143

PATIENT
  Age: 60 Year
  Sex: Female

DRUGS (3)
  1. PREDNISOLONE SODIUM PHOSPHATE [Suspect]
     Indication: RENAL TRANSPLANT
     Dates: start: 19981101
  2. AZATHIOPRINE [Suspect]
     Dates: start: 19981101
  3. CYCLOSPORINE [Suspect]
     Indication: RENAL TRANSPLANT
     Dates: start: 19981101, end: 20041007

REACTIONS (5)
  - CELLULITIS [None]
  - KAPOSI'S SARCOMA [None]
  - LYMPHADENOPATHY [None]
  - SKIN NODULE [None]
  - SUPERINFECTION [None]
